FAERS Safety Report 8521854 (Version 2)
Quarter: 2013Q2

REPORT INFORMATION
  Report Type: Spontaneous
  Country: US (occurrence: US)
  Receive Date: 20120419
  Receipt Date: 20130422
  Transmission Date: 20140414
  Serious: No
  Sender: FDA-Public Use
  Company Number: US-ABBOTT-12P-163-0920298-00

PATIENT
  Age: 10 Year
  Sex: Female
  Weight: 52.66 kg

DRUGS (1)
  1. LUPRON DEPOT-PED 11.25 MG [Suspect]
     Indication: PRECOCIOUS PUBERTY
     Route: 030
     Dates: start: 20090724, end: 20120321

REACTIONS (6)
  - Neuralgia [Unknown]
  - Pain [Unknown]
  - Paraesthesia [Unknown]
  - Hyperpathia [Unknown]
  - Reflex test abnormal [Unknown]
  - Toxicity to various agents [Unknown]
